FAERS Safety Report 8107402-0 (Version None)
Quarter: 2012Q1

REPORT INFORMATION
  Report Type: 
  Country: None (occurrence: None)
  Receive Date: 20120202
  Receipt Date: 20120130
  Transmission Date: 20120608
  Serious: Yes (Other)
  Sender: FDA-Public Use
  Company Number: CN-PFIZER INC-2012023596

PATIENT
  Age: 53 Year
  Sex: Female

DRUGS (3)
  1. VORICONAZOLE [Suspect]
     Indication: CANDIDIASIS
     Dosage: 400 MG, Q12H
     Route: 041
  2. VORICONAZOLE [Suspect]
     Dosage: 270 MG, Q12H
     Route: 041
  3. IMIPENEM AND CILASTATIN SODIUM [Concomitant]
     Dosage: 500 MG, 3X/DAY
     Route: 041

REACTIONS (4)
  - OEDEMA PERIPHERAL [None]
  - VISION BLURRED [None]
  - NEUROLOGICAL SYMPTOM [None]
  - CONJUNCTIVAL HAEMORRHAGE [None]
